FAERS Safety Report 15806474 (Version 1)
Quarter: 2019Q1

REPORT INFORMATION
  Report Type: Spontaneous
  Country: US (occurrence: US)
  Receive Date: 20190104
  Receipt Date: 20190104
  Transmission Date: 20190417
  Serious: No
  Sender: FDA-Public Use
  Company Number: None

PATIENT

DRUGS (2)
  1. ONDANSETRON ONDANSETRON 4 MG/2ML SINGLE USE VIAL [Suspect]
     Active Substance: ONDANSETRON
     Dosage: INJECTABLE IV OR IM 4 MG/2 ML SINGLE USE VIAL
     Route: 041
  2. OXYTOCIN OXYTOCIN 10 UNITS/ML VIAL [Suspect]
     Active Substance: OXYTOCIN
     Dosage: ?          OTHER STRENGTH:10 UNITS/ML; IV INFUSION OR IM?
     Route: 042

REACTIONS (5)
  - Product storage error [None]
  - Product packaging confusion [None]
  - Product name confusion [None]
  - Product supply issue [None]
  - Product label confusion [None]
